FAERS Safety Report 10254162 (Version 1)
Quarter: 2014Q2

REPORT INFORMATION
  Report Type: Spontaneous
  Country: BE (occurrence: BE)
  Receive Date: 20140624
  Receipt Date: 20140624
  Transmission Date: 20141212
  Serious: Yes (Hospitalization, Other)
  Sender: FDA-Public Use
  Company Number: BE-GILEAD-2014-0106241

PATIENT
  Age: 42 Year
  Sex: Male
  Weight: 76 kg

DRUGS (6)
  1. ASAFLOW [Concomitant]
     Indication: VENOUS THROMBOSIS
     Dosage: 80 MG, QD
     Route: 048
     Dates: start: 201101, end: 20140516
  2. STRIBILD [Suspect]
     Indication: HIV INFECTION
     Dosage: 1 DF, QD
     Route: 048
     Dates: start: 20140416, end: 20140516
  3. PRAVASINE [Interacting]
     Indication: DYSLIPIDAEMIA
     Dosage: 40 MG, QD
     Route: 048
     Dates: start: 200809, end: 20140516
  4. LIPANTHYL [Interacting]
     Indication: DYSLIPIDAEMIA
     Dosage: 267 MG, QD
     Route: 048
     Dates: start: 200510, end: 20140516
  5. ZESTRIL [Concomitant]
     Indication: HYPERTENSION
     Dosage: 5 MG, QD
     Route: 048
     Dates: start: 200902, end: 20140516
  6. ZYLORIC [Concomitant]
     Indication: GOUT
     Dosage: 100 MG, QD
     Route: 048
     Dates: start: 200405, end: 20140516

REACTIONS (3)
  - Rhabdomyolysis [Not Recovered/Not Resolved]
  - Renal failure [Not Recovered/Not Resolved]
  - Drug interaction [Recovered/Resolved]
